FAERS Safety Report 9611949 (Version 1)
Quarter: 2013Q4

REPORT INFORMATION
  Report Type: Spontaneous
  Country: US (occurrence: US)
  Receive Date: 20131010
  Receipt Date: 20131010
  Transmission Date: 20140711
  Serious: Yes (Other)
  Sender: FDA-Public Use
  Company Number: US-JNJFOC-20131001554

PATIENT
  Age: 86 Year
  Sex: Male

DRUGS (1)
  1. ZYTIGA [Suspect]
     Indication: PROSTATE CANCER METASTATIC
     Route: 048

REACTIONS (4)
  - Dementia [Not Recovered/Not Resolved]
  - Incontinence [Not Recovered/Not Resolved]
  - Wrong technique in drug usage process [Unknown]
  - Memory impairment [Not Recovered/Not Resolved]
